FAERS Safety Report 7773089-X (Version None)
Quarter: 2011Q3

REPORT INFORMATION
  Report Type: 
  Country: None (occurrence: None)
  Receive Date: 20110922
  Receipt Date: 20110113
  Transmission Date: 20111222
  Serious: No
  Sender: FDA-Public Use
  Company Number: US-ASTRAZENECA-2008UW12265

PATIENT
  Age: 52 Year
  Sex: Female
  Weight: 113.4 kg

DRUGS (11)
  1. SEROQUEL [Suspect]
     Indication: DEPRESSION
     Dosage: 200MG, 300MG
     Route: 048
     Dates: start: 20030801, end: 20031201
  2. SEROQUEL [Suspect]
     Route: 048
     Dates: start: 20030905, end: 20040225
  3. MERIDIA [Concomitant]
  4. HYDROCHLOROTHIAZIDE [Concomitant]
     Dates: start: 20030916, end: 20031215
  5. LEVOXYL [Concomitant]
     Dates: start: 20031213
  6. LISINOPRIL [Concomitant]
     Dates: start: 20031213
  7. EFFEXOR XR [Concomitant]
     Dates: start: 20040225
  8. WELLBUTRIN SR [Concomitant]
  9. LEXAPRO [Concomitant]
     Dates: start: 20030905, end: 20040225
  10. PROZAC [Concomitant]
     Dates: start: 20040225
  11. CYMBALTA [Concomitant]

REACTIONS (5)
  - TYPE 2 DIABETES MELLITUS [None]
  - WEIGHT INCREASED [None]
  - BLOOD CHOLESTEROL INCREASED [None]
  - OBESITY [None]
  - DIABETES MELLITUS INADEQUATE CONTROL [None]
